FAERS Safety Report 9629279 (Version 2)
Quarter: 2013Q4

REPORT INFORMATION
  Report Type: Spontaneous
  Country: US (occurrence: US)
  Receive Date: 20131017
  Receipt Date: 20131107
  Transmission Date: 20140711
  Serious: No
  Sender: FDA-Public Use
  Company Number: US-ASTRAZENECA-2013SE64187

PATIENT
  Age: 78 Year
  Sex: Female
  Weight: 64.9 kg

DRUGS (5)
  1. LISINOP HCTZ [Suspect]
     Indication: BLOOD PRESSURE ABNORMAL
     Dosage: 10 + 12.5 MG AT NIGHT
     Route: 048
  2. METOPROLOL [Suspect]
     Indication: BLOOD PRESSURE ABNORMAL
     Dosage: GENERIC
     Route: 048
  3. CRESTOR [Suspect]
     Indication: BLOOD CHOLESTEROL INCREASED
     Route: 048
  4. EVISTA [Concomitant]
     Indication: OSTEOPOROSIS
  5. EVISTA [Concomitant]
     Indication: NEOPLASM PROPHYLAXIS

REACTIONS (4)
  - Nocturia [Recovered/Resolved]
  - Nocturia [Unknown]
  - Blood pressure abnormal [Unknown]
  - Urine output increased [Unknown]
